FAERS Safety Report 16717546 (Version 9)
Quarter: 2020Q4

REPORT INFORMATION
  Report Type: Other
  Country: CA (occurrence: CA)
  Receive Date: 20190819
  Receipt Date: 20201020
  Transmission Date: 20210113
  Serious: Yes (Other)
  Sender: FDA-Public Use
  Company Number: CA-BECTON DICKINSON-2019BDN00304

PATIENT
  Age: 42 Year
  Sex: Female
  Weight: 81 kg

DRUGS (77)
  1. ACETAMINOPHEN. [Suspect]
     Active Substance: ACETAMINOPHEN
  2. CERTOLIZUMAB PEGOL [Suspect]
     Active Substance: CERTOLIZUMAB PEGOL
     Indication: RHEUMATOID ARTHRITIS
     Dosage: 200 MG, 2X/MONTH
     Route: 058
  3. CERTOLIZUMAB PEGOL [Suspect]
     Active Substance: CERTOLIZUMAB PEGOL
     Dosage: 400 MG, 2X/MONTH
     Route: 058
  4. METHOTREXATE. [Suspect]
     Active Substance: METHOTREXATE
  5. ORENCIA [Suspect]
     Active Substance: ABATACEPT
  6. APO-ZOPLICONE [Concomitant]
  7. CAMELLIA SINENSIS [Concomitant]
     Active Substance: TEA LEAF
  8. VITAMIN C [Concomitant]
     Active Substance: ASCORBIC ACID
  9. ZOPICLONE [Concomitant]
     Active Substance: ZOPICLONE
  10. OXYCODONE HYDROCHLORIDE. [Suspect]
     Active Substance: OXYCODONE HYDROCHLORIDE
  11. OXYCODONE HYDROCHLORIDE. [Suspect]
     Active Substance: OXYCODONE HYDROCHLORIDE
  12. SULFAMETHOXAZOLE AND TRIMETHOPRIM [Suspect]
     Active Substance: SULFAMETHOXAZOLE\TRIMETHOPRIM
  13. ALFACALCIDOL [Concomitant]
     Active Substance: ALFACALCIDOL
  14. D-ALPHA TOCOPHEROL [Concomitant]
     Active Substance: .ALPHA.-TOCOPHEROL, D-
  15. IBUPROFEN. [Concomitant]
     Active Substance: IBUPROFEN
  16. REACTINE [Concomitant]
     Dosage: 10 MG, ^2 EVERY 1 DAYS^
  17. VENTOLIN [Concomitant]
     Active Substance: ALBUTEROL SULFATE
  18. VITAMIN D3 [Concomitant]
     Active Substance: CHOLECALCIFEROL
  19. ACETAMINOPHEN/OXYCODONE [Suspect]
     Active Substance: ACETAMINOPHEN\OXYCODONE HYDROCHLORIDE
     Dosage: 325 MG
  20. CHOLECALCIFEROL [Suspect]
     Active Substance: CHOLECALCIFEROL
  21. CIMZIA [Suspect]
     Active Substance: CERTOLIZUMAB PEGOL
     Dosage: 200 MG, ^2 EVERY 1 MONTHS^
     Route: 058
  22. LEFLUNOMIDE. [Suspect]
     Active Substance: LEFLUNOMIDE
     Dosage: UNK
  23. METHOTREXATE SODIUM. [Suspect]
     Active Substance: METHOTREXATE SODIUM
  24. PERCOCET [Suspect]
     Active Substance: ACETAMINOPHEN\OXYCODONE HYDROCHLORIDE
  25. PERIOGARD [Suspect]
     Active Substance: CHLORHEXIDINE GLUCONATE
     Route: 002
  26. CAMELLIA SINENSIS; DALPHATOCOPHEROL; FISH OIL; VITAMIN D3 [Concomitant]
  27. DESOGESTREL; ETHINYL ESTRADIOL [Concomitant]
  28. FISH OIL [Concomitant]
     Active Substance: FISH OIL
  29. GREEN TEA TINCTURE [Concomitant]
  30. MARVELON [Concomitant]
     Active Substance: DESOGESTREL\ETHINYL ESTRADIOL
  31. PANTOLOC [Concomitant]
     Active Substance: PANTOPRAZOLE SODIUM
     Dosage: 40 MG, 2X/DAY
  32. PANTOPRAZOLE SODIUM ANHYDROUS [Concomitant]
     Active Substance: PANTOPRAZOLE SODIUM ANHYDROUS
  33. PREDNISONE. [Concomitant]
     Active Substance: PREDNISONE
  34. SALBUTAMOL [Concomitant]
     Active Substance: ALBUTEROL
  35. SULFAMETHOXAZOLE; TRIMETHOPRIM [Concomitant]
     Active Substance: SULFAMETHOXAZOLE\TRIMETHOPRIM
  36. VITAMIN D [ERGOCALCIFEROL] [Concomitant]
     Active Substance: ERGOCALCIFEROL
  37. OXYCODONE [Suspect]
     Active Substance: OXYCODONE
  38. VITAMIN E [Suspect]
     Active Substance: .ALPHA.-TOCOPHEROL
  39. ALPHA D [Concomitant]
  40. CHLOLECALCIFEROL [Concomitant]
  41. DOCOSAHEXAENOIC ACID [Concomitant]
     Active Substance: DOCONEXENT
  42. ERGOCALCIFEROL. [Concomitant]
     Active Substance: ERGOCALCIFEROL
  43. NUTRASEA+D [Concomitant]
  44. TRIMETHOPRIM SULFAMETHOXAZOLE [Concomitant]
     Active Substance: SULFAMETHOXAZOLE\TRIMETHOPRIM
  45. VITAMIN D [Concomitant]
     Active Substance: VITAMIN D NOS
  46. CHLORHEXIDINE GLUCONATE. [Suspect]
     Active Substance: CHLORHEXIDINE GLUCONATE
  47. CIMZIA [Suspect]
     Active Substance: CERTOLIZUMAB PEGOL
     Indication: RHEUMATOID ARTHRITIS
     Dosage: 400 MG
     Route: 058
  48. ENBREL [Suspect]
     Active Substance: ETANERCEPT
     Indication: RHEUMATOID ARTHRITIS
     Route: 058
  49. LEFLUNOMIDE. [Suspect]
     Active Substance: LEFLUNOMIDE
     Dosage: UNK
     Route: 048
  50. GREEN TEA EXTRACT (NATURAL FACTORS) [Concomitant]
  51. HYDROXYCHLOROQUINE [Concomitant]
     Active Substance: HYDROXYCHLOROQUINE
  52. HYDROXYCHLOROQUINE SULFATE. [Concomitant]
     Active Substance: HYDROXYCHLOROQUINE SULFATE
  53. TYLENOL [Concomitant]
     Active Substance: ACETAMINOPHEN
  54. VITAMIN C [Concomitant]
     Active Substance: ASCORBIC ACID
  55. ARAVA [Suspect]
     Active Substance: LEFLUNOMIDE
  56. CHLORHEXIDINE [Suspect]
     Active Substance: CHLORHEXIDINE
  57. CIMZIA [Suspect]
     Active Substance: CERTOLIZUMAB PEGOL
     Dosage: 400 MG, ^1 EVERY 2 MONTHS^
     Route: 058
  58. OXYCODONE TEREPHTHALATE [Suspect]
     Active Substance: OXYCODONE TEREPHTHALATE
  59. SIMPONI [Suspect]
     Active Substance: GOLIMUMAB
     Route: 058
  60. CETIRIZINE [Concomitant]
     Active Substance: CETIRIZINE HYDROCHLORIDE
  61. CETIRIZINE HYDROCHLORIDE. [Concomitant]
     Active Substance: CETIRIZINE HYDROCHLORIDE
     Dosage: 10 MG, 2X/DAY
  62. GREEN TEA EXTRACT [CAMELLIA SINENSIS LEAF] [Concomitant]
  63. PLAQUENIL [HYDROXYCHLOROQUINE PHOSPHATE] [Concomitant]
     Active Substance: HYDROXYCHLOROQUINE DIPHOSPHATE
  64. METHOTREXATE. [Suspect]
     Active Substance: METHOTREXATE
  65. ARAVA [Concomitant]
     Active Substance: LEFLUNOMIDE
  66. COENZYME Q10 [Concomitant]
     Active Substance: DIETARY SUPPLEMENT\UBIDECARENONE
  67. MIXED TOCOPHEROL VITAMIN E 400 IU [Concomitant]
     Active Substance: .ALPHA.-TOCOPHEROL ACETATE
  68. NUTRASEA 250MG EPA+DHA+250IU VITAMIN D [Concomitant]
  69. ONE ALPHA [Concomitant]
     Active Substance: ALFACALCIDOL
  70. PANTOPRAZOLE [Concomitant]
     Active Substance: PANTOPRAZOLE
  71. TYLENOL [Concomitant]
     Active Substance: ACETAMINOPHEN
  72. VENTOLIN [Concomitant]
     Active Substance: ALBUTEROL SULFATE
  73. CHLORAPREP [Suspect]
     Active Substance: CHLORHEXIDINE GLUCONATE\ISOPROPYL ALCOHOL
     Route: 061
  74. ACTEMRA [Suspect]
     Active Substance: TOCILIZUMAB
  75. CIMZIA [Suspect]
     Active Substance: CERTOLIZUMAB PEGOL
     Dosage: 400 MG, ^2 EVERY 1 MONTHS^
     Route: 058
  76. PLAQUENIL [Concomitant]
     Active Substance: HYDROXYCHLOROQUINE SULFATE
  77. TOCOPHEROL [Concomitant]
     Active Substance: TOCOPHEROL

REACTIONS (23)
  - Diarrhoea [Recovered/Resolved]
  - Sinusitis [Recovered/Resolved]
  - Contraindicated product administered [Recovered/Resolved]
  - Headache [Recovered/Resolved]
  - Muscle spasticity [Recovered/Resolved]
  - Lower respiratory tract infection [Recovered/Resolved]
  - Pain [Recovered/Resolved]
  - Respiratory disorder [Recovered/Resolved]
  - Urticaria [Recovered/Resolved]
  - Abdominal pain upper [Recovered/Resolved]
  - Back pain [Recovered/Resolved]
  - Pruritus [Recovered/Resolved]
  - Asthenia [Recovered/Resolved]
  - Joint swelling [Recovered/Resolved]
  - Night sweats [Recovered/Resolved]
  - Off label use [Recovered/Resolved]
  - Rash [Recovered/Resolved]
  - Vomiting [Recovered/Resolved]
  - Body temperature increased [Recovered/Resolved]
  - Ear pain [Recovered/Resolved]
  - Incorrect route of product administration [Recovered/Resolved]
  - Insomnia [Recovered/Resolved]
  - Peripheral swelling [Recovered/Resolved]
